FAERS Safety Report 4589759-0 (Version None)
Quarter: 2005Q1

REPORT INFORMATION
  Report Type: 
  Country: None (occurrence: None)
  Receive Date: 20050217
  Receipt Date: 20050204
  Transmission Date: 20050727
  Serious: Yes (Life-Threatening)
  Sender: FDA-Public Use
  Company Number: CIP05000299

PATIENT
  Age: 72 Year
  Sex: Female

DRUGS (6)
  1. BENET (RISEDRONATE SODIUM) TABLET 2.5 MG [Suspect]
     Indication: OSTEOPOROSIS
     Dosage: 2.5 MG DAILY, ORAL
     Route: 048
     Dates: start: 20041111, end: 20041220
  2. ACTONEL [Suspect]
     Dates: end: 20041109
  3. LENDORM [Concomitant]
  4. OPALMON (LIMAPROST) [Concomitant]
  5. ETODOLAC [Concomitant]
  6. GASLON (IRSOGLADINE MALEATE) [Concomitant]

REACTIONS (15)
  - BLOOD ALBUMIN DECREASED [None]
  - BLOOD CALCIUM DECREASED [None]
  - BLOOD CREATINE PHOSPHOKINASE INCREASED [None]
  - BLOOD CREATININE INCREASED [None]
  - BLOOD POTASSIUM DECREASED [None]
  - BLOOD UREA INCREASED [None]
  - CHOLECYSTITIS INFECTIVE [None]
  - GAMMA-GLUTAMYLTRANSFERASE DECREASED [None]
  - HAEMATOCRIT DECREASED [None]
  - HAEMOGLOBIN DECREASED [None]
  - JAUNDICE [None]
  - PLATELET COUNT DECREASED [None]
  - PROTEIN TOTAL DECREASED [None]
  - RED BLOOD CELL COUNT DECREASED [None]
  - SPONDYLOLISTHESIS ACQUIRED [None]
